FAERS Safety Report 14778185 (Version 7)
Quarter: 2020Q1

REPORT INFORMATION
  Report Type: Report from Study
  Country: FR (occurrence: FR)
  Receive Date: 20180419
  Receipt Date: 20200121
  Transmission Date: 20200409
  Serious: Yes (Hospitalization, Other)
  Sender: FDA-Public Use
  Company Number: PHHY2018FR061552

PATIENT
  Age: 72 Year
  Sex: Female

DRUGS (47)
  1. ENVARSUS XR [Suspect]
     Active Substance: TACROLIMUS
     Indication: PRODUCT USED FOR UNKNOWN INDICATION
     Dosage: 1.5 MG, UNK
     Route: 065
     Dates: start: 20160220
  2. ENVARSUS XR [Suspect]
     Active Substance: TACROLIMUS
     Dosage: 5 MG, UNK
     Route: 065
     Dates: start: 20170712, end: 20170715
  3. ENVARSUS XR [Suspect]
     Active Substance: TACROLIMUS
     Dosage: 4 MG, UNK
     Route: 065
     Dates: start: 20180331, end: 20180403
  4. TACROLIMUS. [Concomitant]
     Active Substance: TACROLIMUS
     Indication: IMMUNOSUPPRESSION
     Dosage: 1.5 MG, UNK
     Route: 065
     Dates: start: 20160216
  5. SOLU-MEDROL [Concomitant]
     Active Substance: METHYLPREDNISOLONE SODIUM SUCCINATE
     Indication: PRODUCT USED FOR UNKNOWN INDICATION
     Dosage: 500 MG, UNK
     Route: 065
     Dates: start: 20170713, end: 20170713
  6. SOLUPRED [Concomitant]
     Dosage: 20 MG, UNK
     Route: 065
     Dates: start: 20170916, end: 20171110
  7. SOLUPRED [Concomitant]
     Dosage: 15 MG, UNK
     Route: 065
     Dates: start: 20171211, end: 20180216
  8. MYFORTIC [Suspect]
     Active Substance: MYCOPHENOLATE SODIUM
     Dosage: 360 MG, UNK
     Route: 065
     Dates: start: 20170408, end: 20170701
  9. MYFORTIC [Suspect]
     Active Substance: MYCOPHENOLATE SODIUM
     Dosage: 720 MG, UNK
     Route: 065
     Dates: start: 20180616
  10. ENVARSUS XR [Suspect]
     Active Substance: TACROLIMUS
     Dosage: 1.5 MG, UNK
     Route: 065
     Dates: start: 20180217, end: 20180322
  11. ENVARSUS XR [Suspect]
     Active Substance: TACROLIMUS
     Dosage: 2.25 MG, UNK
     Route: 065
     Dates: start: 20180323, end: 20180324
  12. CITALOPRAM [Concomitant]
     Active Substance: CITALOPRAM HYDROBROMIDE
     Indication: DEPRESSION
     Dosage: 10 MG, UNK
     Route: 065
     Dates: start: 20140912
  13. SOLUPRED [Concomitant]
     Dosage: 25 MG, UNK
     Route: 065
     Dates: start: 20170812, end: 20170915
  14. SOLUPRED [Concomitant]
     Dosage: 10 MG, UNK
     Route: 065
     Dates: start: 20180322, end: 20180615
  15. THYMOGLOBULINE [Concomitant]
     Active Substance: LAPINE T-LYMPHOCYTE IMMUNE GLOBULIN
     Indication: PRODUCT USED FOR UNKNOWN INDICATION
     Dosage: 75 MG, UNK
     Route: 065
     Dates: start: 20180405, end: 20180407
  16. PROGRAF [Suspect]
     Active Substance: TACROLIMUS
     Indication: PRODUCT USED FOR UNKNOWN INDICATION
     Dosage: 2 MG, UNK
     Route: 065
     Dates: start: 20140913, end: 20160219
  17. PROGRAF [Suspect]
     Active Substance: TACROLIMUS
     Dosage: 6 MG, UNK
     Route: 065
     Dates: start: 20180525, end: 20181012
  18. ENVARSUS XR [Suspect]
     Active Substance: TACROLIMUS
     Dosage: 4 MG, UNK
     Route: 065
     Dates: start: 20170716, end: 20171002
  19. ENVARSUS XR [Suspect]
     Active Substance: TACROLIMUS
     Dosage: 2 MG, UNK
     Route: 065
     Dates: start: 20180330, end: 20180330
  20. BACTRIM [Concomitant]
     Active Substance: SULFAMETHOXAZOLE\TRIMETHOPRIM
     Indication: PROPHYLAXIS
     Dosage: 100 MG, UNK
     Route: 065
     Dates: start: 201707
  21. MYFORTIC [Suspect]
     Active Substance: MYCOPHENOLATE SODIUM
     Dosage: 1440 MG, UNK
     Route: 065
     Dates: start: 20140204, end: 20150410
  22. MYFORTIC [Suspect]
     Active Substance: MYCOPHENOLATE SODIUM
     Dosage: 720 MG, UNK
     Route: 065
     Dates: start: 20150411, end: 20170407
  23. ADVAGRAF [Suspect]
     Active Substance: TACROLIMUS
     Indication: PRODUCT USED FOR UNKNOWN INDICATION
     Dosage: 3 MG, UNK
     Route: 065
     Dates: start: 20140718, end: 20140912
  24. PROGRAF [Suspect]
     Active Substance: TACROLIMUS
     Dosage: 10 MG, UNK
     Route: 065
     Dates: start: 20180410, end: 20180411
  25. ENVARSUS XR [Suspect]
     Active Substance: TACROLIMUS
     Dosage: 3 MG, UNK
     Route: 065
     Dates: start: 20170706, end: 20170707
  26. ENVARSUS XR [Suspect]
     Active Substance: TACROLIMUS
     Dosage: 3 MG, UNK
     Route: 065
     Dates: start: 20171003, end: 20180216
  27. ENVARSUS XR [Suspect]
     Active Substance: TACROLIMUS
     Dosage: 1.75 MG, UNK
     Route: 065
     Dates: start: 20180324, end: 20180329
  28. ACETYLSALICYLIC ACID [Concomitant]
     Active Substance: ASPIRIN
     Indication: PROPHYLAXIS
     Dosage: 100 MG, UNK
     Route: 065
     Dates: start: 20140211
  29. SOLUPRED [Concomitant]
     Dosage: 12.5 MG, UNK
     Route: 065
     Dates: start: 20180216, end: 20180321
  30. SOLUPRED [Concomitant]
     Dosage: 5 MG, UNK
     Route: 065
     Dates: start: 20181013
  31. PROGRAF [Suspect]
     Active Substance: TACROLIMUS
     Dosage: 7 MG, UNK
     Route: 065
     Dates: start: 20180413, end: 20180524
  32. ENVARSUS XR [Suspect]
     Active Substance: TACROLIMUS
     Dosage: 4 MG, UNK
     Route: 065
     Dates: start: 20170708, end: 20170711
  33. ENVARSUS XR [Suspect]
     Active Substance: TACROLIMUS
     Dosage: 5 MG, UNK
     Route: 065
     Dates: start: 20180404, end: 20180406
  34. PROGRAF [Suspect]
     Active Substance: TACROLIMUS
     Dosage: 2 MG, UNK
     Route: 065
     Dates: start: 20180407, end: 20180409
  35. ENVARSUS XR [Suspect]
     Active Substance: TACROLIMUS
     Dosage: 1 MG, UNK
     Route: 065
     Dates: start: 20170408, end: 20170701
  36. ENVARSUS XR [Suspect]
     Active Substance: TACROLIMUS
     Dosage: 2 MG, UNK
     Route: 065
     Dates: start: 20170702, end: 20170705
  37. SOLUPRED [Concomitant]
     Indication: PRODUCT USED FOR UNKNOWN INDICATION
     Dosage: 30 MG, UNK
     Route: 065
     Dates: start: 201707, end: 20170811
  38. SOLUPRED [Concomitant]
     Dosage: 17.5 MG, UNK
     Route: 065
     Dates: start: 20171111, end: 20171210
  39. PROGRAF [Suspect]
     Active Substance: TACROLIMUS
     Dosage: 8 MG, UNK
     Route: 065
     Dates: start: 20180412, end: 20180412
  40. NO TREATMENT RECEIVED [Suspect]
     Active Substance: UNSPECIFIED INGREDIENT
     Indication: LIVER TRANSPLANT
     Route: 065
  41. PREDNISOLONE. [Concomitant]
     Active Substance: PREDNISOLONE
     Indication: IMMUNOSUPPRESSION
     Dosage: 10 MG, UNK
     Route: 065
     Dates: start: 20170713
  42. LANSOPRAZOLE. [Concomitant]
     Active Substance: LANSOPRAZOLE
     Indication: PROPHYLAXIS
     Dosage: 30 MG, UNK
     Route: 065
     Dates: start: 201707
  43. MYFORTIC [Suspect]
     Active Substance: MYCOPHENOLATE SODIUM
     Indication: LIVER TRANSPLANT
     Dosage: 180 MG, BID
     Route: 048
     Dates: start: 20140203
  44. MYFORTIC [Suspect]
     Active Substance: MYCOPHENOLATE SODIUM
     Dosage: 1440 MG, UNK
     Route: 065
     Dates: start: 20170702, end: 20180615
  45. PROGRAF [Suspect]
     Active Substance: TACROLIMUS
     Dosage: 4 MG, UNK
     Route: 065
     Dates: start: 20181013
  46. ROVALCYTE [Suspect]
     Active Substance: VALGANCICLOVIR HYDROCHLORIDE
     Indication: LEUKOPENIA
     Route: 065
  47. SOLUPRED [Concomitant]
     Dosage: 7.5 MG, UNK
     Route: 065
     Dates: start: 20180616, end: 20181012

REACTIONS (6)
  - Liver transplant rejection [Recovering/Resolving]
  - Pruritus [Recovered/Resolved]
  - Vanishing bile duct syndrome [Not Recovered/Not Resolved]
  - Hepatic enzyme increased [Recovering/Resolving]
  - Leukopenia [Recovered/Resolved]
  - Venoocclusive disease [Recovering/Resolving]

NARRATIVE: CASE EVENT DATE: 20170613
